FAERS Safety Report 17740395 (Version 1)
Quarter: 2020Q2

REPORT INFORMATION
  Report Type: Spontaneous
  Country: US (occurrence: US)
  Receive Date: 20200504
  Receipt Date: 20200504
  Transmission Date: 20200714
  Serious: No
  Sender: FDA-Public Use
  Company Number: US-SA-2020SA109185

PATIENT
  Sex: Female

DRUGS (3)
  1. SELSUN BLUE MEDICATED [Suspect]
     Active Substance: SELENIUM SULFIDE
     Indication: ROSACEA
  2. SELSUN BLUE MEDICATED [Suspect]
     Active Substance: SELENIUM SULFIDE
     Indication: ONYCHOMYCOSIS
  3. VICKS VAPORUB [CAMPHOR;EUCALYPTUS GLOBULUS OIL;MENTHOL] [Concomitant]
     Indication: ONYCHOMYCOSIS

REACTIONS (2)
  - Product use in unapproved indication [Unknown]
  - Intentional product misuse [Unknown]
